FAERS Safety Report 7964722 (Version 3)
Quarter: 2012Q4

REPORT INFORMATION
  Report Type: Report from Study
  Country: US (occurrence: US)
  Receive Date: 20110527
  Receipt Date: 20121005
  Transmission Date: 20130627
  Serious: Yes (Hospitalization)
  Sender: FDA-Public Use
  Company Number: US-JNJFOC-20110509099

PATIENT
  Age: 15 Year
  Sex: Male
  Weight: 41.7 kg

DRUGS (9)
  1. REMICADE [Suspect]
     Indication: INFLAMMATORY BOWEL DISEASE
     Route: 042
     Dates: start: 20070804, end: 20090402
  2. HUMIRA [Concomitant]
     Indication: INFLAMMATORY BOWEL DISEASE
     Dates: start: 20090417, end: 20100806
  3. PREDNISONE [Concomitant]
  4. ANTIBIOTICS [Concomitant]
     Indication: INFLAMMATORY BOWEL DISEASE
  5. THALIDOMIDE [Concomitant]
  6. CYPROHEPTADINE [Concomitant]
  7. IRON [Concomitant]
  8. CALCIUM [Concomitant]
  9. VITAMIN D [Concomitant]

REACTIONS (1)
  - Device dislocation [Recovered/Resolved]
